FAERS Safety Report 24277386 (Version 1)
Quarter: 2024Q3

REPORT INFORMATION
  Report Type: Spontaneous
  Country: JP (occurrence: JP)
  Receive Date: 20240903
  Receipt Date: 20240903
  Transmission Date: 20241017
  Serious: Yes (Hospitalization, Other)
  Sender: SANOFI AVENTIS
  Company Number: JP-SA-2024SA255008

PATIENT
  Age: 66 Year
  Sex: Female

DRUGS (3)
  1. OXALIPLATIN [Suspect]
     Active Substance: OXALIPLATIN
     Indication: Gastric cancer
     Dosage: UNK
  2. TS-1 [Concomitant]
     Active Substance: GIMERACIL\OTERACIL POTASSIUM\TEGAFUR
     Indication: Gastric cancer
     Dosage: UNK
  3. NIVOLUMAB [Concomitant]
     Active Substance: NIVOLUMAB
     Indication: Gastric cancer
     Dosage: UNK

REACTIONS (1)
  - Gastric perforation [Unknown]
